FAERS Safety Report 13836512 (Version 1)
Quarter: 2017Q3

REPORT INFORMATION
  Report Type: Spontaneous
  Country: US (occurrence: US)
  Receive Date: 20170804
  Receipt Date: 20170804
  Transmission Date: 20171127
  Serious: Yes (Hospitalization, Other)
  Sender: FDA-Public Use
  Company Number: US-BRISTOL-MYERS SQUIBB COMPANY-BMS-2017-068300

PATIENT
  Sex: Male

DRUGS (4)
  1. ABILIFY [Suspect]
     Active Substance: ARIPIPRAZOLE
     Indication: PSYCHOTIC DISORDER
     Route: 065
  2. ABILIFY [Suspect]
     Active Substance: ARIPIPRAZOLE
     Indication: BIPOLAR DISORDER
     Route: 065
  3. ABILIFY [Suspect]
     Active Substance: ARIPIPRAZOLE
     Indication: MAJOR DEPRESSION
     Route: 065
  4. ABILIFY [Suspect]
     Active Substance: ARIPIPRAZOLE
     Indication: SCHIZOPHRENIA
     Dosage: 400 MG, UNK
     Route: 065
     Dates: start: 20131218, end: 20170316

REACTIONS (12)
  - Injury [Unknown]
  - Prescribed overdose [Unknown]
  - Impulsive behaviour [Unknown]
  - Obsessive-compulsive disorder [Unknown]
  - Sexual dysfunction [Unknown]
  - Brain injury [Unknown]
  - Pain [Unknown]
  - Gambling disorder [Unknown]
  - Emotional distress [Unknown]
  - Impaired quality of life [Unknown]
  - Mental disorder [Unknown]
  - Anxiety [Unknown]
